FAERS Safety Report 8982449 (Version 1)
Quarter: 2012Q4

REPORT INFORMATION
  Report Type: 
  Country: US (occurrence: US)
  Receive Date: 20121212
  Receipt Date: 20121212
  Transmission Date: 20130627
  Serious: Yes (Hospitalization)
  Sender: FDA-Public Use
  Company Number: US-ASTELLAS-1103738

PATIENT
  Sex: Female

DRUGS (3)
  1. AVASTIN [Suspect]
     Indication: RENAL CANCER
     Route: 065
  2. AVASTIN [Suspect]
     Indication: MALIGNANT URINARY TRACT NEOPLASM
  3. TARCEVA [Suspect]
     Indication: PRODUCT USED FOR UNKNOWN INDICATION
     Route: 065

REACTIONS (3)
  - Fatigue [Unknown]
  - Pyrexia [Unknown]
  - Pulmonary oedema [Unknown]
